FAERS Safety Report 11990509 (Version 1)
Quarter: 2016Q1

REPORT INFORMATION
  Report Type: Spontaneous
  Country: US (occurrence: US)
  Receive Date: 20160202
  Receipt Date: 20160202
  Transmission Date: 20160526
  Serious: Yes (Death, Hospitalization, Other)
  Sender: FDA-Public Use
  Company Number: US-ABBVIE-16P-163-1550260-00

PATIENT
  Age: 78 Year
  Sex: Male

DRUGS (21)
  1. IPRATROPIUM/ALBUTEROL [Concomitant]
     Active Substance: ALBUTEROL\IPRATROPIUM
     Indication: PRODUCT USED FOR UNKNOWN INDICATION
     Route: 065
  2. HYDROCODONE/ACETAMINOPHEN [Concomitant]
     Active Substance: ACETAMINOPHEN\HYDROCODONE
     Indication: PRODUCT USED FOR UNKNOWN INDICATION
     Route: 065
  3. QVAR [Concomitant]
     Active Substance: BECLOMETHASONE DIPROPIONATE
     Indication: PRODUCT USED FOR UNKNOWN INDICATION
     Route: 065
  4. CALCIUM + VITAMIN D3 [Concomitant]
     Active Substance: CALCIUM CARBONATE\CHOLECALCIFEROL
     Indication: PRODUCT USED FOR UNKNOWN INDICATION
     Route: 065
  5. PRAVACHOL [Concomitant]
     Active Substance: PRAVASTATIN SODIUM
     Indication: PRODUCT USED FOR UNKNOWN INDICATION
     Route: 065
  6. LUPRON [Suspect]
     Active Substance: LEUPROLIDE ACETATE
     Indication: PROSTATE CANCER METASTATIC
     Dosage: REGIMEN #1
     Route: 065
     Dates: start: 20150622, end: 20160115
  7. XGEVA [Suspect]
     Active Substance: DENOSUMAB
     Indication: PROSTATE CANCER METASTATIC
     Dosage: REGIMEN #1
     Route: 065
     Dates: start: 201507
  8. DILTZAC [Concomitant]
     Active Substance: DILTIAZEM HYDROCHLORIDE
     Indication: PRODUCT USED FOR UNKNOWN INDICATION
     Route: 065
  9. LASIX [Concomitant]
     Active Substance: FUROSEMIDE
     Indication: PRODUCT USED FOR UNKNOWN INDICATION
     Route: 065
  10. DURAGESIC MAT [Concomitant]
     Active Substance: FENTANYL
     Indication: PRODUCT USED FOR UNKNOWN INDICATION
     Route: 065
  11. XTANDI [Suspect]
     Active Substance: ENZALUTAMIDE
     Indication: PROSTATE CANCER
     Route: 048
     Dates: start: 20151029, end: 20160114
  12. CASODEX [Concomitant]
     Active Substance: BICALUTAMIDE
     Indication: PRODUCT USED FOR UNKNOWN INDICATION
     Route: 065
  13. SILVADENE [Concomitant]
     Active Substance: SILVER SULFADIAZINE
     Indication: PRODUCT USED FOR UNKNOWN INDICATION
     Route: 065
  14. STOOL SOFTENER [Concomitant]
     Active Substance: DOCUSATE CALCIUM
     Indication: PRODUCT USED FOR UNKNOWN INDICATION
     Route: 065
  15. DOXAZOSIN MESYLATE. [Concomitant]
     Active Substance: DOXAZOSIN MESYLATE
     Indication: PRODUCT USED FOR UNKNOWN INDICATION
     Route: 065
  16. GLYBURIDE. [Concomitant]
     Active Substance: GLYBURIDE
     Indication: PRODUCT USED FOR UNKNOWN INDICATION
     Route: 065
  17. ZOFRAN [Concomitant]
     Active Substance: ONDANSETRON HYDROCHLORIDE
     Indication: PRODUCT USED FOR UNKNOWN INDICATION
     Route: 065
  18. XARELTO [Concomitant]
     Active Substance: RIVAROXABAN
     Indication: PRODUCT USED FOR UNKNOWN INDICATION
     Route: 065
  19. OXYGEN. [Concomitant]
     Active Substance: OXYGEN
     Indication: PRODUCT USED FOR UNKNOWN INDICATION
     Route: 065
  20. ALLERGY RELIEF [Concomitant]
     Indication: PRODUCT USED FOR UNKNOWN INDICATION
     Route: 065
  21. PRADAXA [Concomitant]
     Active Substance: DABIGATRAN ETEXILATE MESYLATE
     Indication: PRODUCT USED FOR UNKNOWN INDICATION
     Route: 065

REACTIONS (10)
  - Constipation [Unknown]
  - Back pain [Unknown]
  - Decreased appetite [Unknown]
  - Weight decreased [Unknown]
  - Pneumonia [Unknown]
  - Clostridium difficile infection [Unknown]
  - Fatigue [Unknown]
  - Dyspnoea exertional [Unknown]
  - Prostate cancer [Fatal]
  - Drug intolerance [Unknown]

NARRATIVE: CASE EVENT DATE: 20160115
